FAERS Safety Report 9187953 (Version 2)
Quarter: 2013Q1

REPORT INFORMATION
  Report Type: Spontaneous
  Country: CL (occurrence: CL)
  Receive Date: 20130325
  Receipt Date: 20130329
  Transmission Date: 20140127
  Serious: Yes (Other)
  Sender: FDA-Public Use
  Company Number: CL-PFIZER INC-2013096162

PATIENT
  Age: 25 Year
  Sex: Female

DRUGS (1)
  1. SAYANA [Suspect]
     Indication: CONTRACEPTION
     Dosage: 1 DF, EVERY 3 MONTHS
     Route: 058
     Dates: start: 201203, end: 20130307

REACTIONS (4)
  - Anaphylactic reaction [Recovered/Resolved]
  - Asphyxia [Recovered/Resolved]
  - Skin reaction [Recovered/Resolved]
  - Dizziness [Recovered/Resolved]
